FAERS Safety Report 4594918-7 (Version None)
Quarter: 2005Q1

REPORT INFORMATION
  Report Type: 
  Country: None (occurrence: None)
  Receive Date: 20050223
  Receipt Date: 20041215
  Transmission Date: 20050727
  Serious: Yes (Hospitalization)
  Sender: FDA-Public Use
  Company Number: 2004097528

PATIENT
  Age: 54 Year
  Sex: Male

DRUGS (6)
  1. SOLU-MEDROL (METHYLPREDNISOLONE SODIUM SUCCINATE) [Suspect]
     Indication: SURGERY
     Dosage: ORAL
     Route: 048
     Dates: start: 20040628
  2. CLINDAMYCIN HCL [Suspect]
     Indication: ILL-DEFINED DISORDER
     Dosage: ORAL
     Route: 048
     Dates: start: 20040628
  3. PARACETAMOL [Suspect]
     Indication: ILL-DEFINED DISORDER
     Dosage: ORAL
     Route: 048
     Dates: start: 20040628
  4. PRISTINAMYCIN [Suspect]
     Indication: ILL-DEFINED DISORDER
     Dosage: ORAL
     Route: 048
     Dates: start: 20040628
  5. FENOFIBRATE [Concomitant]
  6. PERINDOPRIL [Concomitant]

REACTIONS (5)
  - DRUG ERUPTION [None]
  - HYPERTHERMIA [None]
  - PURPURA [None]
  - RASH ERYTHEMATOUS [None]
  - VIRAL INFECTION [None]
